FAERS Safety Report 6436660-3 (Version None)
Quarter: 2009Q4

REPORT INFORMATION
  Report Type: 
  Country: None (occurrence: None)
  Receive Date: 20091110
  Receipt Date: 20091110
  Transmission Date: 20100525
  Serious: Yes (Hospitalization)
  Sender: FDA-Public Use
  Company Number: None

PATIENT
  Age: 74 Year
  Sex: Female
  Weight: 67.1324 kg

DRUGS (3)
  1. OXALIPLATIN [Suspect]
     Indication: PANCREATIC CARCINOMA METASTATIC
     Dates: start: 20091022, end: 20091105
  2. CAPECITIBINE [Concomitant]
  3. SORAFENIB [Concomitant]

REACTIONS (6)
  - ASTHENIA [None]
  - DIPLOPIA [None]
  - DYSPNOEA [None]
  - OXYGEN SATURATION DECREASED [None]
  - PRESYNCOPE [None]
  - SOMNOLENCE [None]
